FAERS Safety Report 22041790 (Version 1)
Quarter: 2023Q1

REPORT INFORMATION
  Report Type: Spontaneous
  Country: US (occurrence: US)
  Receive Date: 20230227
  Receipt Date: 20230227
  Transmission Date: 20230418
  Serious: Yes (Hospitalization, Other)
  Sender: FDA-Public Use
  Company Number: US-MLMSERVICE-20230209-4093902-1

PATIENT
  Age: 70 Year
  Sex: Male

DRUGS (2)
  1. GEMCITABINE HYDROCHLORIDE [Interacting]
     Active Substance: GEMCITABINE HYDROCHLORIDE
     Indication: Squamous cell carcinoma of lung
     Dosage: 13504 MG, CYCLICAL
     Route: 065
  2. CISPLATIN [Interacting]
     Active Substance: CISPLATIN
     Indication: Squamous cell carcinoma of lung
     Dosage: 172 MG, CYCLICAL
     Route: 065

REACTIONS (4)
  - Diastolic dysfunction [Recovered/Resolved]
  - Drug interaction [Unknown]
  - Acute myocardial infarction [Recovered/Resolved]
  - Pancytopenia [Unknown]
